FAERS Safety Report 25561343 (Version 1)
Quarter: 2025Q3

REPORT INFORMATION
  Report Type: Spontaneous
  Country: US (occurrence: US)
  Receive Date: 20250716
  Receipt Date: 20250716
  Transmission Date: 20251021
  Serious: No
  Sender: SANOFI AVENTIS
  Company Number: US-SA-2025SA198614

PATIENT
  Sex: Female

DRUGS (4)
  1. DUPIXENT [Suspect]
     Active Substance: DUPILUMAB
     Indication: Dermatitis atopic
     Route: 058
     Dates: start: 20220104, end: 20220104
  2. DUPIXENT [Suspect]
     Active Substance: DUPILUMAB
  3. PREDNISONE [Interacting]
     Active Substance: PREDNISONE
  4. RINVOQ [Concomitant]
     Active Substance: UPADACITINIB

REACTIONS (1)
  - Sleep disorder due to a general medical condition [Unknown]
